FAERS Safety Report 15069457 (Version 5)
Quarter: 2019Q3

REPORT INFORMATION
  Report Type: Report from Study
  Country: US (occurrence: US)
  Receive Date: 20180626
  Receipt Date: 20190830
  Transmission Date: 20191004
  Serious: Yes (Death, Hospitalization)
  Sender: FDA-Public Use
  Company Number: US-ACTELION-A-US2018-174381

PATIENT
  Age: 46 Year
  Sex: Female
  Weight: 62.59 kg

DRUGS (5)
  1. ADCIRCA [Concomitant]
     Active Substance: TADALAFIL
  2. UPTRAVI [Suspect]
     Active Substance: SELEXIPAG
     Dosage: 200 MCG, BID
     Route: 048
  3. LETAIRIS [Concomitant]
     Active Substance: AMBRISENTAN
  4. UPTRAVI [Suspect]
     Active Substance: SELEXIPAG
     Dosage: 600 MCG, BID
     Route: 048
     Dates: start: 201808
  5. UPTRAVI [Suspect]
     Active Substance: SELEXIPAG
     Indication: PULMONARY HYPERTENSION
     Dosage: 400 MCG, BID
     Route: 048
     Dates: start: 201808

REACTIONS (12)
  - Abdominal pain upper [Unknown]
  - Angioedema [Unknown]
  - Headache [Unknown]
  - Gastric disorder [Unknown]
  - Fluid retention [Unknown]
  - Pericardial effusion [Unknown]
  - Incontinence [Unknown]
  - Death [Fatal]
  - Oedema [Unknown]
  - Bowel movement irregularity [Unknown]
  - Contusion [Unknown]
  - Dyspnoea [Unknown]

NARRATIVE: CASE EVENT DATE: 20180903
